FAERS Safety Report 20439885 (Version 1)
Quarter: 2022Q1

REPORT INFORMATION
  Report Type: Spontaneous
  Country: AR (occurrence: AR)
  Receive Date: 20220207
  Receipt Date: 20220207
  Transmission Date: 20220423
  Serious: Yes (Other)
  Sender: FDA-Public Use
  Company Number: AR-002147023-NVSC2022AR019001

PATIENT

DRUGS (1)
  1. RUXOLITINIB [Suspect]
     Active Substance: RUXOLITINIB
     Indication: Polycythaemia vera
     Dosage: 10 MG, Q12H
     Route: 065
     Dates: start: 2018, end: 202111

REACTIONS (6)
  - Sensitive skin [Unknown]
  - Gait disturbance [Unknown]
  - Myelitis [Unknown]
  - Paraesthesia [Unknown]
  - Spinal cord disorder [Unknown]
  - Asthenia [Unknown]
